FAERS Safety Report 5494778-6 (Version None)
Quarter: 2007Q4

REPORT INFORMATION
  Report Type: 
  Country: None (occurrence: None)
  Receive Date: 20071024
  Receipt Date: 20071022
  Transmission Date: 20080405
  Serious: Yes (Life-Threatening, Hospitalization)
  Sender: FDA-Public Use
  Company Number: DE-BRISTOL-MYERS SQUIBB COMPANY-13952999

PATIENT
  Age: 65 Year
  Sex: Female
  Weight: 68 kg

DRUGS (5)
  1. TAXOL [Suspect]
     Indication: BREAST CANCER
     Route: 042
     Dates: start: 20070911
  2. EPIRUBICIN [Suspect]
     Indication: BREAST CANCER
     Route: 042
     Dates: start: 20070730, end: 20070828
  3. ZOLPIDEM TARTRATE [Concomitant]
     Route: 048
     Dates: start: 20070924, end: 20071005
  4. NEORECORMON [Concomitant]
     Dosage: 1 DOSAGE FORM= 30000(NO UNITS)
     Route: 058
     Dates: start: 20070911
  5. NEULASTA [Concomitant]
     Route: 058
     Dates: start: 20070731

REACTIONS (1)
  - FEBRILE NEUTROPENIA [None]
